FAERS Safety Report 7543460-X (Version None)
Quarter: 2011Q2

REPORT INFORMATION
  Report Type: 
  Country: None (occurrence: None)
  Receive Date: 20110613
  Receipt Date: 20110531
  Transmission Date: 20111010
  Serious: Yes (Other)
  Sender: FDA-Public Use
  Company Number: PHHY2010BR71468

PATIENT
  Sex: Female
  Weight: 70 kg

DRUGS (1)
  1. DIOVAN [Suspect]
     Indication: HYPERTENSION
     Dosage: 80 MG, UNK

REACTIONS (7)
  - RETINOPATHY [None]
  - INTRAOCULAR PRESSURE INCREASED [None]
  - DYSPNOEA [None]
  - CATARACT [None]
  - BLOOD PRESSURE INCREASED [None]
  - KERATOCONUS [None]
  - EYE DISCHARGE [None]
